FAERS Safety Report 25973613 (Version 2)
Quarter: 2025Q4

REPORT INFORMATION
  Report Type: Spontaneous
  Country: US (occurrence: US)
  Receive Date: 20251029
  Receipt Date: 20251112
  Transmission Date: 20260118
  Serious: Yes (Death, Other)
  Sender: ADVANZ PHARMA
  Company Number: US-ADVANZ PHARMA-202510009509

PATIENT

DRUGS (1)
  1. HYDROXYCHLOROQUINE [Suspect]
     Active Substance: HYDROXYCHLOROQUINE
     Indication: Systemic lupus erythematosus
     Dosage: 400 MG, QD
     Route: 065

REACTIONS (4)
  - Neonatal lupus erythematosus [Fatal]
  - Hydrops foetalis [Fatal]
  - Foetal death [Fatal]
  - Foetal exposure during pregnancy [Unknown]
